FAERS Safety Report 7450792-2 (Version None)
Quarter: 2011Q2

REPORT INFORMATION
  Report Type: 
  Country: None (occurrence: None)
  Receive Date: 20110502
  Receipt Date: 20110421
  Transmission Date: 20111010
  Serious: Yes (Hospitalization, Disabling)
  Sender: FDA-Public Use
  Company Number: FI-AMGEN-FINSP2011019189

PATIENT
  Age: 50 Year
  Sex: Female

DRUGS (10)
  1. KLEXANE                            /01708202/ [Concomitant]
     Dosage: 40 MG, QD
  2. ALENDRONAT RATIOPHARM [Concomitant]
     Dosage: 70 MG, UNK
  3. AMLODIPIN ACTAVIS [Concomitant]
     Dosage: 5 MG, UNK
  4. LINATIL [Concomitant]
     Dosage: 20 MG, UNK
  5. EMCONCOR                           /00802601/ [Concomitant]
     Dosage: 5 MG, UNK
  6. TRAMAL                             /00599202/ [Concomitant]
     Dosage: 50 MG, UNK
  7. SPIRESIS [Concomitant]
     Dosage: 25 MG, UNK
  8. PENTASA [Concomitant]
     Dosage: 500 MG, UNK
  9. NPLATE [Suspect]
     Indication: IDIOPATHIC THROMBOCYTOPENIC PURPURA
     Dosage: 180 A?G, UNK
     Route: 058
     Dates: start: 20101208
  10. PANADOL                            /00020001/ [Concomitant]
     Dosage: 665 MG, UNK

REACTIONS (1)
  - DEEP VEIN THROMBOSIS [None]
